FAERS Safety Report 9154974 (Version 1)
Quarter: 2013Q1

REPORT INFORMATION
  Report Type: Spontaneous
  Country: US (occurrence: US)
  Receive Date: 20130311
  Receipt Date: 20130311
  Transmission Date: 20140127
  Serious: Yes (Hospitalization)
  Sender: FDA-Public Use
  Company Number: US-BAYER-2013-028041

PATIENT
  Age: 18 Year
  Sex: Female
  Weight: 63.41 kg

DRUGS (6)
  1. YASMIN [Suspect]
  2. YAZ [Suspect]
  3. TAMIFLU [Concomitant]
     Indication: H1N1 INFLUENZA
     Dosage: 75 MG, UNK
  4. DORYX [DOXYCYCLINE HYDROCHLORIDE] [Concomitant]
     Dosage: 150 MG, UNK
  5. EPIDUO [Concomitant]
     Dosage: 0.1-2.5 %
  6. ADVAIR DISKUS [Concomitant]
     Dosage: 250/50 MG

REACTIONS (1)
  - Pulmonary embolism [Recovered/Resolved]
